FAERS Safety Report 5740228-1 (Version None)
Quarter: 2008Q2

REPORT INFORMATION
  Report Type: 
  Country: None (occurrence: None)
  Receive Date: 20080513
  Receipt Date: 20080505
  Transmission Date: 20081010
  Serious: Yes (Other)
  Sender: FDA-Public Use
  Company Number: 027416

PATIENT
  Age: 30 Year
  Sex: Female

DRUGS (4)
  1. AVIANE-21 [Suspect]
     Indication: HORMONE THERAPY
     Dosage: TABLET, QD, ORAL
     Route: 048
     Dates: start: 20080409, end: 20080412
  2. AVIANE-21 [Suspect]
     Indication: ORAL CONTRACEPTION
     Dosage: TABLET, QD, ORAL
     Route: 048
     Dates: start: 20080409, end: 20080412
  3. LEVONORGESTRELE/ETHINYLESTRADIOL [Concomitant]
  4. VANLAFAXINE [Concomitant]

REACTIONS (3)
  - AFFECT LABILITY [None]
  - INSOMNIA [None]
  - RESTLESSNESS [None]
